FAERS Safety Report 6175790-0 (Version None)
Quarter: 2009Q2

REPORT INFORMATION
  Report Type: 
  Country: None (occurrence: None)
  Receive Date: 20090501
  Receipt Date: 20090424
  Transmission Date: 20091009
  Serious: Yes (Other)
  Sender: FDA-Public Use
  Company Number: US-JNJFOC-20090406089

PATIENT
  Sex: Male

DRUGS (2)
  1. REMICADE [Suspect]
     Indication: COLITIS ULCERATIVE
     Dosage: 4 INFUSIONS
     Route: 042
  2. BENADRYL [Concomitant]
     Indication: PREMEDICATION

REACTIONS (2)
  - HEADACHE [None]
  - MUSCLE TWITCHING [None]
